FAERS Safety Report 5296117-2 (Version None)
Quarter: 2007Q2

REPORT INFORMATION
  Report Type: 
  Country: None (occurrence: None)
  Receive Date: 20070413
  Receipt Date: 20070402
  Transmission Date: 20071010
  Serious: Yes (Other)
  Sender: FDA-Public Use
  Company Number: PHBS2007JP05426

PATIENT
  Age: 25 Year
  Sex: Female

DRUGS (2)
  1. VOLTAREN [Suspect]
     Indication: DYSMENORRHOEA
     Route: 048
  2. LOXONIN [Suspect]
     Indication: DYSMENORRHOEA
     Route: 048

REACTIONS (10)
  - ANAPHYLACTIC REACTION [None]
  - ANTIGLIADIN ANTIBODY POSITIVE [None]
  - DEPRESSED LEVEL OF CONSCIOUSNESS [None]
  - DIZZINESS [None]
  - DYSPNOEA [None]
  - FLUSHING [None]
  - HYPOTENSION [None]
  - MOOD ALTERED [None]
  - SKIN TEST POSITIVE [None]
  - URTICARIA [None]
